FAERS Safety Report 6886268-0 (Version None)
Quarter: 2010Q3

REPORT INFORMATION
  Report Type: 
  Country: None (occurrence: None)
  Receive Date: 20100729
  Receipt Date: 20080616
  Transmission Date: 20110219
  Serious: Yes (Hospitalization, Disabling, Other)
  Sender: FDA-Public Use
  Company Number: US-PFIZER INC-2008034022

PATIENT
  Sex: Male

DRUGS (1)
  1. CELEBREX [Suspect]
     Indication: MUSCULOSKELETAL PAIN
     Dates: start: 19990128

REACTIONS (5)
  - AMNESIA [None]
  - BRAIN INJURY [None]
  - MENTAL DISORDER [None]
  - MYOCARDIAL INFARCTION [None]
  - TREMOR [None]
